FAERS Safety Report 18411234 (Version 1)
Quarter: 2020Q4

REPORT INFORMATION
  Report Type: Spontaneous
  Country: US (occurrence: US)
  Receive Date: 20201021
  Receipt Date: 20201021
  Transmission Date: 20210114
  Serious: Yes (Hospitalization)
  Sender: FDA-Public Use
  Company Number: US-PURDUE-USA-2020-0171879

PATIENT
  Age: 25 Year
  Sex: Female

DRUGS (3)
  1. OXYCODONE HYDROCHLORIDE (SIMILAR TO NDA 22-272) [Suspect]
     Active Substance: OXYCODONE HYDROCHLORIDE
     Indication: PAIN
     Dosage: UNK
     Route: 048
  2. TYLENOL [Concomitant]
     Active Substance: ACETAMINOPHEN
     Indication: PAIN
     Dosage: 1000 MG, Q8H
     Route: 065
  3. ULTRAM [Concomitant]
     Active Substance: TRAMADOL HYDROCHLORIDE
     Indication: PAIN
     Dosage: UNK
     Route: 065

REACTIONS (15)
  - Nausea [Unknown]
  - Dizziness [Unknown]
  - Lethargy [Unknown]
  - Hospitalisation [Unknown]
  - Anhedonia [Unknown]
  - Illness [Unknown]
  - Hyperhidrosis [Unknown]
  - Pain [Unknown]
  - Constipation [Unknown]
  - Drug withdrawal syndrome [Unknown]
  - Vomiting [Unknown]
  - Aggression [Unknown]
  - Emotional distress [Unknown]
  - Depression [Unknown]
  - Disorientation [Unknown]
